FAERS Safety Report 7588317-3 (Version None)
Quarter: 2011Q3

REPORT INFORMATION
  Report Type: 
  Country: None (occurrence: None)
  Receive Date: 20110705
  Receipt Date: 20090930
  Transmission Date: 20111222
  Serious: Yes (Hospitalization, Other)
  Sender: FDA-Public Use
  Company Number: US-BAYER-200934427NA

PATIENT
  Age: 60 Year
  Sex: Male
  Weight: 107 kg

DRUGS (21)
  1. CELEBREX [Concomitant]
     Dosage: 200 MG, ONCE, LONG TERM USE
     Route: 048
  2. PANCURONIUM [Concomitant]
     Dosage: 15 MG, UNK
     Route: 042
     Dates: start: 20041208
  3. PAVULON [Concomitant]
     Dosage: 4 MG, UNK
     Route: 042
     Dates: start: 20041208
  4. LOTREL [Concomitant]
     Dosage: 5/20MG DAILY, LONG TERM USE
     Route: 048
  5. VIAGRA [Concomitant]
     Dosage: AS NEEDED, LONGTERM USE
     Route: 048
  6. VISIPAQUE [Concomitant]
     Indication: PRODUCT USED FOR UNKNOWN INDICATION
     Dosage: 130 ML, UNK
     Dates: start: 20041208
  7. ACETYLSALICYLIC ACID SRT [Concomitant]
     Dosage: LONG TERM USE
     Route: 048
  8. PRIMACOR [Concomitant]
     Dosage: 4 MG, UNK
     Route: 042
     Dates: start: 20041208
  9. CEFZIL [Concomitant]
     Dosage: 2 G, UNK
     Route: 042
     Dates: start: 20041208
  10. HEPARIN [Concomitant]
     Dosage: 20000 U, UNK
     Route: 042
     Dates: start: 20041208
  11. LIPITOR [Concomitant]
     Dosage: 10 MG, ONCE
  12. TRASYLOL [Suspect]
     Indication: CORONARY ARTERY BYPASS
     Dosage: 200 ML, PUMP PRIME
     Route: 042
     Dates: start: 20041208, end: 20041208
  13. REGULAR INSULIN [Concomitant]
     Dosage: 40 U, UNK
     Route: 042
     Dates: start: 20041208
  14. KEFZOL [Concomitant]
     Dosage: 2 G, UNK
     Route: 042
     Dates: start: 20041208
  15. FRESH FROZEN PLASMA [Concomitant]
     Indication: PRODUCT USED FOR UNKNOWN INDICATION
     Dosage: 2 TIMES
     Dates: start: 20041208
  16. TRENTAL [Concomitant]
     Dosage: 400 MG, TID, LONG TERM USE
     Route: 048
  17. LASIX [Concomitant]
     Dosage: 20 MG, UNK
     Route: 042
     Dates: start: 20041208
  18. RED BLOOD CELLS [Concomitant]
     Indication: PRODUCT USED FOR UNKNOWN INDICATION
     Dosage: 2 U, UNK
     Dates: start: 20041208
  19. PLATELETS [Concomitant]
     Indication: PRODUCT USED FOR UNKNOWN INDICATION
     Dosage: 1 PACK
     Dates: start: 20041208
  20. METOPROLOL TARTRATE [Concomitant]
     Dosage: 2.5 MG, UNK
     Route: 042
     Dates: start: 20041208
  21. LISINOPRIL [Concomitant]
     Dosage: 10 MG, ONCE
     Dates: start: 20041217

REACTIONS (10)
  - RENAL FAILURE [None]
  - ANXIETY [None]
  - FEAR [None]
  - EMOTIONAL DISTRESS [None]
  - INJURY [None]
  - PAIN [None]
  - RENAL IMPAIRMENT [None]
  - RENAL INJURY [None]
  - UNEVALUABLE EVENT [None]
  - STRESS [None]
